FAERS Safety Report 5455150-8 (Version None)
Quarter: 2007Q3

REPORT INFORMATION
  Report Type: 
  Country: None (occurrence: None)
  Receive Date: 20070914
  Receipt Date: 20070903
  Transmission Date: 20080115
  Serious: Yes (Hospitalization, Other)
  Sender: FDA-Public Use
  Company Number: GXKR2007GR07671

PATIENT
  Age: 48 Year
  Sex: Male

DRUGS (2)
  1. AMITRIPTLINE HCL [Suspect]
     Indication: DEPRESSION
     Dosage: 50 MG, QD,
  2. ASPIRIN [Concomitant]

REACTIONS (10)
  - COLITIS ISCHAEMIC [None]
  - CONSTIPATION [None]
  - ELECTROCARDIOGRAM QT PROLONGED [None]
  - FALL [None]
  - HEAD INJURY [None]
  - HEADACHE [None]
  - LEUKOCYTOSIS [None]
  - LOSS OF CONSCIOUSNESS [None]
  - ORTHOSTATIC HYPOTENSION [None]
  - SINUS TACHYCARDIA [None]
